FAERS Safety Report 22079270 (Version 1)
Quarter: 2023Q1

REPORT INFORMATION
  Report Type: Spontaneous
  Country: US (occurrence: US)
  Receive Date: 20230309
  Receipt Date: 20230309
  Transmission Date: 20230418
  Serious: Yes (Other)
  Sender: FDA-Public Use
  Company Number: US-ELI_LILLY_AND_COMPANY-US202303002562

PATIENT
  Sex: Male

DRUGS (2)
  1. HUMALOG [Suspect]
     Active Substance: INSULIN LISPRO
     Indication: Type 2 diabetes mellitus
     Dosage: UNK, PRN, SLIDING SCALE
     Route: 058
     Dates: start: 20230113
  2. LANTUS [Concomitant]
     Active Substance: INSULIN GLARGINE
     Indication: Type 2 diabetes mellitus
     Dosage: 7 U, OTHER, AM AND PM
     Route: 065

REACTIONS (3)
  - Eye injury [Recovering/Resolving]
  - Blood glucose abnormal [Recovering/Resolving]
  - Weight decreased [Unknown]
